FAERS Safety Report 16662498 (Version 2)
Quarter: 2020Q1

REPORT INFORMATION
  Report Type: Report from Study
  Country: US (occurrence: US)
  Receive Date: 20190802
  Receipt Date: 20200129
  Transmission Date: 20200409
  Serious: No
  Sender: FDA-Public Use
  Company Number: US-EXELIXIS-CABO-19018763

PATIENT
  Age: 59 Year
  Sex: Female

DRUGS (3)
  1. CABOMETYX [Suspect]
     Active Substance: CABOZANTINIB S-MALATE
     Indication: UTERINE CANCER
     Dosage: 40 MG, AM WITHOUT FOOD
     Route: 048
     Dates: start: 2016, end: 20190303
  2. CABOMETYX [Suspect]
     Active Substance: CABOZANTINIB S-MALATE
     Dosage: 40 MG, QD AM WITHOUT FOOD
     Route: 048
     Dates: start: 20190303
  3. NIVOLUMAB [Suspect]
     Active Substance: NIVOLUMAB
     Indication: UTERINE CANCER
     Dosage: UNK

REACTIONS (16)
  - Hepatitis [Unknown]
  - Diarrhoea [Recovering/Resolving]
  - Alopecia [Unknown]
  - Palmar-plantar erythrodysaesthesia syndrome [Unknown]
  - Neuropathy peripheral [Recovering/Resolving]
  - Fatigue [Unknown]
  - Red blood cell count decreased [Unknown]
  - Weight decreased [Not Recovered/Not Resolved]
  - Decreased appetite [Recovering/Resolving]
  - Pelvic pain [Unknown]
  - Dizziness [Unknown]
  - Vomiting [Unknown]
  - Pain in extremity [Unknown]
  - Pulmonary embolism [Recovered/Resolved]
  - Nausea [Unknown]
  - Off label use [Unknown]

NARRATIVE: CASE EVENT DATE: 201905
